FAERS Safety Report 14815191 (Version 2)
Quarter: 2018Q2

REPORT INFORMATION
  Report Type: Spontaneous
  Country: US (occurrence: US)
  Receive Date: 20180426
  Receipt Date: 20180511
  Transmission Date: 20180711
  Serious: Yes (Hospitalization)
  Sender: FDA-Public Use
  Company Number: US-TEVA-2018-US-884933

PATIENT
  Age: 39 Year
  Sex: Male

DRUGS (5)
  1. PREDNISONE. [Suspect]
     Active Substance: PREDNISONE
     Dosage: 50 MILLIGRAM DAILY; THE DOSE WAS FURTHER RE-ESCALATED TO 100 MG DAILY
     Route: 048
  2. PREDNISONE. [Suspect]
     Active Substance: PREDNISONE
     Dosage: 100 MILLIGRAM DAILY; 100MG DAILY; THE DOSE WAS FURTHER INCREASED TO 125MG DAILY
     Route: 048
  3. PREDNISONE. [Suspect]
     Active Substance: PREDNISONE
     Dosage: 125 MILLIGRAM DAILY;
     Route: 048
  4. IPILIMUMAB [Suspect]
     Active Substance: IPILIMUMAB
     Indication: MALIGNANT MELANOMA
     Dosage: EVERY 21 DAYS
     Route: 065
  5. PREDNISONE. [Suspect]
     Active Substance: PREDNISONE
     Dosage: 100 MILLIGRAM DAILY;
     Route: 048

REACTIONS (2)
  - Orbital myositis [Unknown]
  - Intraocular pressure increased [Unknown]
